FAERS Safety Report 16321046 (Version 1)
Quarter: 2019Q2

REPORT INFORMATION
  Report Type: Spontaneous
  Country: JP (occurrence: JP)
  Receive Date: 20190516
  Receipt Date: 20190516
  Transmission Date: 20190711
  Serious: Yes (Other)
  Sender: FDA-Public Use
  Company Number: JP-MYLANLABS-2018M1045546

PATIENT
  Age: 79 Year
  Sex: Male

DRUGS (1)
  1. LIDOCAINE HYDROCHLORIDE INJECTION 1? [PFIZER] [Suspect]
     Active Substance: LIDOCAINE HYDROCHLORIDE
     Indication: SURGERY
     Route: 065

REACTIONS (1)
  - Acute kidney injury [Unknown]
